FAERS Safety Report 11384031 (Version 1)
Quarter: 2015Q3

REPORT INFORMATION
  Report Type: Spontaneous
  Country: IT (occurrence: IT)
  Receive Date: 20150815
  Receipt Date: 20150815
  Transmission Date: 20151125
  Serious: Yes (Death, Other)
  Sender: FDA-Public Use
  Company Number: IT-CIPLA LTD.-2015IT06515

PATIENT

DRUGS (4)
  1. IFOSFAMIDE. [Suspect]
     Active Substance: IFOSFAMIDE
     Indication: MALIGNANT HISTIOCYTOSIS
     Dosage: 3000 MG/M2, (DAY 1), REPEATED EVERY 3 WEEKS
     Route: 065
  2. VEMURAFENIB [Suspect]
     Active Substance: VEMURAFENIB
     Indication: BRAF GENE MUTATION
     Dosage: 960 MG, BID
     Route: 065
  3. EPIRUBICIN [Suspect]
     Active Substance: EPIRUBICIN
     Indication: MALIGNANT HISTIOCYTOSIS
     Dosage: 60 MG/M2, (DAY 1), REPEATED EVERY 3 WEEKS
     Route: 065
  4. GRANULOCYTES COLONY STIMULATING FACTORS [Suspect]
     Active Substance: GRANULOCYTE COLONY-STIMULATING FACTOR NOS
     Indication: PROPHYLAXIS
     Route: 065

REACTIONS (14)
  - Disease progression [Unknown]
  - Movement disorder [Unknown]
  - Cough [Recovered/Resolved]
  - Stomatitis [Unknown]
  - BRAF gene mutation [Unknown]
  - Hypokalaemia [Unknown]
  - Cerebral haemorrhage [Fatal]
  - Fatigue [Unknown]
  - Dizziness [Unknown]
  - Bone pain [Unknown]
  - Electrocardiogram QT prolonged [Unknown]
  - Diarrhoea [Recovering/Resolving]
  - Skin toxicity [Unknown]
  - Decreased appetite [Unknown]
